FAERS Safety Report 24930311 (Version 4)
Quarter: 2025Q2

REPORT INFORMATION
  Report Type: Spontaneous
  Country: CO (occurrence: CO)
  Receive Date: 20250205
  Receipt Date: 20250403
  Transmission Date: 20250717
  Serious: No
  Sender: PFIZER
  Company Number: CO-PFIZER INC-202500020126

PATIENT
  Age: 14 Year
  Sex: Female

DRUGS (1)
  1. GENOTROPIN [Suspect]
     Active Substance: SOMATROPIN
     Dosage: 1.4 MG, DAILY
     Route: 058

REACTIONS (5)
  - Device physical property issue [Unknown]
  - Device material opacification [Unknown]
  - Product contamination [Unknown]
  - Device delivery system issue [Unknown]
  - Device occlusion [Unknown]
